FAERS Safety Report 23381339 (Version 3)
Quarter: 2024Q1

REPORT INFORMATION
  Report Type: Spontaneous
  Country: BR (occurrence: BR)
  Receive Date: 20240109
  Receipt Date: 20240313
  Transmission Date: 20240410
  Serious: Yes (Other)
  Sender: FDA-Public Use
  Company Number: BR-009507513-2401BRA004394

PATIENT
  Age: 63 Year
  Sex: Male

DRUGS (5)
  1. JANUMET [Suspect]
     Active Substance: METFORMIN HYDROCHLORIDE\SITAGLIPTIN PHOSPHATE
     Indication: Diabetes mellitus
     Dosage: 1 TABLET A DAY
     Route: 048
     Dates: start: 2023, end: 20231229
  2. LOSARTAN POTASSIUM [Concomitant]
     Active Substance: LOSARTAN POTASSIUM
     Dosage: 1 TABLET PER DAY
     Route: 048
  3. GLIFAGE [METFORMIN HYDROCHLORIDE] [Concomitant]
     Dosage: 2 TABLETS DAILY AT NIGHT
     Route: 048
  4. SIMVASTATIN [Concomitant]
     Active Substance: SIMVASTATIN
     Dosage: 20 MG ONCE PER DAY
  5. DOXAZOSIN MESYLATE [Concomitant]
     Active Substance: DOXAZOSIN MESYLATE
     Dosage: ONCE PER DAY

REACTIONS (6)
  - Diabetes mellitus inadequate control [Unknown]
  - Drug ineffective [Unknown]
  - Prescription drug used without a prescription [Unknown]
  - Inappropriate schedule of product administration [Unknown]
  - Suspected counterfeit product [Unknown]
  - Product quality issue [Unknown]

NARRATIVE: CASE EVENT DATE: 20230101
